FAERS Safety Report 4494847-3 (Version None)
Quarter: 2004Q4

REPORT INFORMATION
  Report Type: 
  Country: None (occurrence: None)
  Receive Date: 20041103
  Receipt Date: 20041026
  Transmission Date: 20050328
  Serious: Yes (Other)
  Sender: FDA-Public Use
  Company Number: HQWYE107127OCT04

PATIENT
  Sex: Male

DRUGS (2)
  1. CORDARONE [Suspect]
     Dosage: UNKNOWN LOADING DOSE ORAL
     Route: 048
     Dates: start: 20040101, end: 20040101
  2. CORDARONE [Suspect]
     Dosage: 800 MG 1X PER 1 DAY ORAL
     Route: 048
     Dates: start: 20040101, end: 20040101

REACTIONS (1)
  - RENAL FAILURE ACUTE [None]
